FAERS Safety Report 7040075-7 (Version None)
Quarter: 2010Q4

REPORT INFORMATION
  Report Type: 
  Country: None (occurrence: None)
  Receive Date: 20101012
  Receipt Date: 20100928
  Transmission Date: 20110411
  Serious: Yes (Other)
  Sender: FDA-Public Use
  Company Number: PHHY2010NO45838

PATIENT
  Sex: Female

DRUGS (2)
  1. RITALIN [Suspect]
     Indication: ATTENTION DEFICIT/HYPERACTIVITY DISORDER
     Dosage: 100 MG MORNING AND 40 MG AFTERNOON DAILY
  2. RITALIN [Suspect]
     Dosage: 40 MG WAS USED IN ADDITION TO THE PRESCRIBED DOSE

REACTIONS (2)
  - DRUG ABUSE [None]
  - DRUG EXPOSURE DURING PREGNANCY [None]
